FAERS Safety Report 5129982-X (Version None)
Quarter: 2006Q4

REPORT INFORMATION
  Report Type: 
  Country: None (occurrence: None)
  Receive Date: 20061013
  Receipt Date: 20061006
  Transmission Date: 20070319
  Serious: Yes (Other)
  Sender: FDA-Public Use
  Company Number: 2006-02610

PATIENT
  Sex: Male

DRUGS (1)
  1. VELCADE [Suspect]
     Indication: MULTIPLE MYELOMA
     Dosage: 1.40 MG/M2, INTRAVENOUS
     Route: 042
     Dates: start: 20060215, end: 20060515

REACTIONS (3)
  - DYSAESTHESIA [None]
  - MUSCULAR WEAKNESS [None]
  - PAIN [None]
